FAERS Safety Report 9790913 (Version 3)
Quarter: 2014Q1

REPORT INFORMATION
  Report Type: Report from Study
  Country: US (occurrence: US)
  Receive Date: 20131231
  Receipt Date: 20140114
  Transmission Date: 20141002
  Serious: Yes (Death, Hospitalization)
  Sender: FDA-Public Use
  Company Number: US-ACTELION-A-US2013-92922

PATIENT
  Age: 49 Year
  Sex: Male

DRUGS (2)
  1. VELETRI [Suspect]
     Indication: PULMONARY ARTERIAL HYPERTENSION
     Dosage: 27 NG/KG, PER MIN
     Route: 042
     Dates: start: 20130726
  2. TRACLEER [Suspect]
     Indication: PULMONARY ARTERIAL HYPERTENSION
     Dosage: UNK
     Route: 048
     Dates: end: 20131220

REACTIONS (8)
  - Pulmonary arterial hypertension [Fatal]
  - Pulmonary oedema [Fatal]
  - Right ventricular failure [Fatal]
  - Dyspnoea [Fatal]
  - Hypoxia [Fatal]
  - Oedema peripheral [Fatal]
  - Ascites [Fatal]
  - Condition aggravated [Not Recovered/Not Resolved]
